FAERS Safety Report 23179823 (Version 1)
Quarter: 2023Q4

REPORT INFORMATION
  Report Type: Report from Study
  Country: US (occurrence: US)
  Receive Date: 20231114
  Receipt Date: 20231114
  Transmission Date: 20240109
  Serious: Yes (Other)
  Sender: FDA-Public Use
  Company Number: US-ABBVIE-5486325

PATIENT
  Sex: Female
  Weight: 93 kg

DRUGS (11)
  1. HUMIRA [Suspect]
     Active Substance: ADALIMUMAB
     Indication: Crohn^s disease
     Dosage: FORM STRENGTH: 40 MG
     Route: 058
  2. HUMIRA [Suspect]
     Active Substance: ADALIMUMAB
     Dosage: FORM STRENGTH: 40 MG
     Route: 058
     Dates: start: 20220729
  3. HUMIRA [Suspect]
     Active Substance: ADALIMUMAB
     Dosage: FORM STRENGTH: 40 MG
     Route: 058
     Dates: start: 20210521, end: 20220615
  4. HUMIRA [Suspect]
     Active Substance: ADALIMUMAB
     Dosage: FORM STRENGTH: 40 MG?STARTED AT LEAST MIGHT BE EIGHT YEARS AGO AS OF 02 NOV 2023
     Route: 058
     Dates: end: 2020
  5. REFRESH TEARS [Suspect]
     Active Substance: CARBOXYMETHYLCELLULOSE SODIUM
     Indication: Dry eye
     Dosage: 1 DROP ON BOTH EYES AS NEEDED; LUBRICANT EYE DROPS?5MG/ML SOL CL MD
     Route: 047
     Dates: start: 2003
  6. LIALDA [Concomitant]
     Active Substance: MESALAMINE
     Indication: Colitis ulcerative
  7. PFIZER-BIONTECH COVID-19 VACCINE [Concomitant]
     Active Substance: TOZINAMERAN
     Indication: COVID-19 immunisation
     Dosage: BOOSTER DOSE?ONE IN ONCE
     Route: 030
     Dates: start: 20220609, end: 20220609
  8. PFIZER-BIONTECH COVID-19 VACCINE [Concomitant]
     Active Substance: TOZINAMERAN
     Indication: COVID-19 immunisation
     Dosage: FIRST DOSE?ONE IN ONCE
     Route: 030
  9. PFIZER-BIONTECH COVID-19 VACCINE [Concomitant]
     Active Substance: TOZINAMERAN
     Indication: COVID-19 immunisation
     Dosage: SECOND DOSE?ONE IN ONCE
     Route: 030
  10. MACROBID [Concomitant]
     Active Substance: NITROFURANTOIN\NITROFURANTOIN MONOHYDRATE
     Indication: Urinary tract infection
     Dates: start: 20231013, end: 20231020
  11. MACROBID [Concomitant]
     Active Substance: NITROFURANTOIN\NITROFURANTOIN MONOHYDRATE
     Indication: Urinary tract infection
     Dates: start: 20230906, end: 20230912

REACTIONS (28)
  - Photopsia [Recovered/Resolved]
  - Cataract nuclear [Not Recovered/Not Resolved]
  - Retinal tear [Recovering/Resolving]
  - Malignant melanoma in situ [Recovered/Resolved]
  - Dysstasia [Recovered/Resolved]
  - Kidney enlargement [Not Recovered/Not Resolved]
  - Neck pain [Recovered/Resolved]
  - Vitreous detachment [Recovered/Resolved]
  - Urethral obstruction [Recovering/Resolving]
  - Cataract nuclear [Not Recovered/Not Resolved]
  - Dizziness [Recovered/Resolved]
  - Nasal congestion [Not Recovered/Not Resolved]
  - Vitreous detachment [Recovering/Resolving]
  - Rhinitis [Not Recovered/Not Resolved]
  - Eye haemorrhage [Recovered/Resolved]
  - Pyrexia [Recovered/Resolved]
  - Benign neoplasm of thyroid gland [Recovered/Resolved]
  - Urinary tract infection [Not Recovered/Not Resolved]
  - Urinary tract infection [Recovered/Resolved]
  - Epiretinal membrane [Recovering/Resolving]
  - Vitreous floaters [Recovered/Resolved]
  - Malignant melanoma in situ [Recovered/Resolved]
  - Nasal congestion [Recovered/Resolved]
  - Stag horn calculus [Not Recovered/Not Resolved]
  - Nephrolithiasis [Recovering/Resolving]
  - Escherichia infection [Not Recovered/Not Resolved]
  - Retinal disorder [Recovering/Resolving]
  - COVID-19 [Recovered/Resolved]

NARRATIVE: CASE EVENT DATE: 20150101
